FAERS Safety Report 11122472 (Version 1)
Quarter: 2015Q2

REPORT INFORMATION
  Report Type: Spontaneous
  Country: CN (occurrence: CN)
  Receive Date: 20150519
  Receipt Date: 20150519
  Transmission Date: 20150821
  Serious: Yes (Death, Other)
  Sender: FDA-Public Use
  Company Number: CN-GLAXOSMITHKLINE-CN2015GSK064240

PATIENT

DRUGS (1)
  1. LAMOTRIGINE. [Suspect]
     Active Substance: LAMOTRIGINE
     Indication: PRODUCT USED FOR UNKNOWN INDICATION

REACTIONS (9)
  - Septic shock [Fatal]
  - Papule [Unknown]
  - Nikolsky^s sign [Unknown]
  - Erythema [Unknown]
  - Skin exfoliation [Unknown]
  - Skin swelling [Unknown]
  - Condition aggravated [Unknown]
  - Mouth ulceration [Unknown]
  - Blister [Unknown]
